FAERS Safety Report 21539317 (Version 1)
Quarter: 2022Q4

REPORT INFORMATION
  Report Type: Report from Study
  Country: US (occurrence: US)
  Receive Date: 20221102
  Receipt Date: 20221102
  Transmission Date: 20230113
  Serious: Yes (Other)
  Sender: FDA-Public Use
  Company Number: US-ABBVIE-4184227

PATIENT
  Age: 58 Year
  Sex: Male

DRUGS (3)
  1. RINVOQ [Suspect]
     Active Substance: UPADACITINIB
     Indication: Rheumatoid arthritis
     Route: 048
  2. Unknown Covid-19 Vaccine [Concomitant]
     Indication: COVID-19 immunisation
     Dosage: FOURTH BOOSTER, ONE IN ONCE
     Route: 030
     Dates: start: 20220401, end: 20220401
  3. Unknown Covid-19 Vaccine [Concomitant]
     Indication: COVID-19 immunisation
     Dosage: ONE IN ONCE

REACTIONS (3)
  - Spinal operation [Unknown]
  - Escherichia infection [Unknown]
  - Surgical failure [Unknown]

NARRATIVE: CASE EVENT DATE: 20220801
